FAERS Safety Report 20231649 (Version 1)
Quarter: 2021Q4

REPORT INFORMATION
  Report Type: Spontaneous
  Country: CN (occurrence: CN)
  Receive Date: 20211227
  Receipt Date: 20211227
  Transmission Date: 20220303
  Serious: Yes (Other)
  Sender: FDA-Public Use
  Company Number: CN-SA-2021SA426152

PATIENT
  Age: 51 Year
  Sex: Male

DRUGS (2)
  1. DOCETAXEL [Suspect]
     Active Substance: DOCETAXEL
     Indication: Adenocarcinoma of salivary gland
  2. CISPLATIN [Suspect]
     Active Substance: CISPLATIN
     Indication: Adenocarcinoma of salivary gland

REACTIONS (8)
  - Salivary gland cancer recurrent [Recovered/Resolved]
  - Face oedema [Recovered/Resolved]
  - Oedema peripheral [Recovered/Resolved]
  - Parotid gland enlargement [Recovered/Resolved]
  - Musculoskeletal stiffness [Recovered/Resolved]
  - Localised oedema [Recovered/Resolved]
  - Erythema [Recovered/Resolved]
  - Decreased activity [Recovered/Resolved]
